FAERS Safety Report 7311643-X (Version None)
Quarter: 2011Q1

REPORT INFORMATION
  Report Type: 
  Country: None (occurrence: None)
  Receive Date: 20110224
  Receipt Date: 20110215
  Transmission Date: 20110831
  Serious: No
  Sender: FDA-Public Use
  Company Number: JP-ASTRAZENECA-2011SE06717

PATIENT
  Age: 54 Year
  Sex: Male

DRUGS (5)
  1. ACINON [Suspect]
     Indication: GASTRITIS EROSIVE
     Route: 048
     Dates: start: 20110123, end: 20110207
  2. AMLODIN OD [Suspect]
     Indication: HYPERTENSION
     Route: 048
     Dates: start: 20090926
  3. MUCOSTA [Suspect]
     Indication: GASTRITIS EROSIVE
     Route: 048
     Dates: start: 20070210
  4. CRESTOR [Suspect]
     Indication: HYPERCHOLESTEROLAEMIA
     Route: 048
     Dates: start: 20101215, end: 20110131
  5. MOBIC [Suspect]
     Dosage: DOSE UNKNOWN
     Route: 048
     Dates: end: 20110207

REACTIONS (2)
  - THROMBOCYTOPENIA [None]
  - EPISTAXIS [None]
